FAERS Safety Report 10085008 (Version 1)
Quarter: 2014Q2

REPORT INFORMATION
  Report Type: Spontaneous
  Country: US (occurrence: US)
  Receive Date: 20140417
  Receipt Date: 20140417
  Transmission Date: 20141212
  Serious: No
  Sender: FDA-Public Use
  Company Number: US-009507513-1403USA014497

PATIENT
  Age: 6 Year
  Sex: Female

DRUGS (5)
  1. CLARITIN CHEWABLE TABLETS [Suspect]
     Indication: SEASONAL ALLERGY
     Dosage: UNK, UNKNOWN
     Route: 048
  2. CLARITIN CHEWABLE TABLETS [Suspect]
     Indication: RHINORRHOEA
  3. CLARITIN CHEWABLE TABLETS [Suspect]
     Indication: EYE SWELLING
  4. CLARITIN CHEWABLE TABLETS [Suspect]
     Indication: SNEEZING
  5. CLARITIN CHEWABLE TABLETS [Suspect]
     Indication: OROPHARYNGEAL PAIN

REACTIONS (1)
  - Drug effect decreased [Unknown]
